FAERS Safety Report 20943252 (Version 1)
Quarter: 2022Q2

REPORT INFORMATION
  Report Type: Spontaneous
  Country: PL (occurrence: PL)
  Receive Date: 20220610
  Receipt Date: 20220610
  Transmission Date: 20220721
  Serious: Yes (Other)
  Sender: FDA-Public Use
  Company Number: PL-AMGEN-POLSP2022096708

PATIENT

DRUGS (2)
  1. FILGRASTIM [Suspect]
     Active Substance: FILGRASTIM
     Indication: Neutropenia
     Dosage: UNK
     Route: 065
  2. FILGRASTIM [Suspect]
     Active Substance: FILGRASTIM
     Indication: Off label use

REACTIONS (22)
  - Hypersplenism [Unknown]
  - Rectal ulcer [Recovering/Resolving]
  - Autism spectrum disorder [Unknown]
  - Intellectual disability [Unknown]
  - Epilepsy [Recovered/Resolved]
  - Inflammatory bowel disease [Unknown]
  - Splenomegaly [Unknown]
  - Infection [Recovering/Resolving]
  - Aphthous ulcer [Recovering/Resolving]
  - Hypertriglyceridaemia [Recovering/Resolving]
  - Blood lactic acid increased [Unknown]
  - Alanine aminotransferase increased [Unknown]
  - Overweight [Unknown]
  - Short stature [Unknown]
  - Off label use [Unknown]
  - Aspartate aminotransferase increased [Unknown]
  - Therapy non-responder [Unknown]
  - Bone pain [Unknown]
  - Arthralgia [Unknown]
  - Epistaxis [Unknown]
  - Blood uric acid increased [Recovered/Resolved]
  - Hypertension [Unknown]
